FAERS Safety Report 8537559-9 (Version None)
Quarter: 2012Q3

REPORT INFORMATION
  Report Type: 
  Country: None (occurrence: None)
  Receive Date: 20120725
  Receipt Date: 20120716
  Transmission Date: 20120928
  Serious: Yes (Death, Other)
  Sender: FDA-Public Use
  Company Number: GB-CELGENEUS-167-FK228-12070345

PATIENT
  Sex: Female

DRUGS (1)
  1. ROMIDEPSIN [Suspect]
     Dosage: 14 MILLIGRAM/SQ. METER
     Route: 065

REACTIONS (3)
  - CHRONIC LYMPHOCYTIC LEUKAEMIA TRANSFORMATION [None]
  - CEREBRAL HAEMORRHAGE [None]
  - SKIN DISORDER [None]
